FAERS Safety Report 8783801 (Version 1)
Quarter: 2012Q4

REPORT INFORMATION
  Report Type: 
  Country: US (occurrence: US)
  Receive Date: 20120913
  Receipt Date: 20120913
  Transmission Date: 20130627
  Serious: No
  Sender: FDA-Public Use
  Company Number: US-B.I. PHARMACEUTICALS,INC./RIDGEFIELD-2012-BP-22162BP

PATIENT
  Sex: Male
  Weight: 107 kg

DRUGS (15)
  1. SPIRIVA [Suspect]
     Indication: DYSPNOEA
     Dosage: 18 mcg
     Route: 055
     Dates: start: 201206
  2. VENTOLIN [Concomitant]
     Indication: DYSPNOEA
     Route: 055
     Dates: start: 201202
  3. LEVOTHYROXINE [Concomitant]
     Indication: HYPOTHYROIDISM
     Dosage: 25 mcg
     Route: 048
  4. CLARITIN [Concomitant]
     Indication: NASAL CONGESTION
     Dosage: 10 mg
     Route: 048
  5. FUROSEMIDE [Concomitant]
     Indication: DIURETIC THERAPY
     Dosage: 40 mg
     Route: 048
  6. KLOR-CON [Concomitant]
     Indication: BLOOD POTASSIUM ABNORMAL
     Dosage: 20 mEq
     Route: 048
  7. PRAVASTATIN [Concomitant]
     Indication: BLOOD CHOLESTEROL INCREASED
     Dosage: 40 mg
     Route: 048
  8. WARFARIN [Concomitant]
     Indication: THROMBOSIS
     Dosage: 2.5 mg
     Route: 048
  9. ALLOPURINOL [Concomitant]
     Indication: GOUT
     Dosage: 300 mg
     Route: 048
  10. MULTI VITAMIN [Concomitant]
     Route: 048
  11. BABY ASPIRIN [Concomitant]
     Dosage: 81 mg
     Route: 048
  12. TAMSULOSIN [Concomitant]
     Indication: PROSTATIC DISORDER
     Dosage: 0.4 mg
     Route: 048
  13. TRAMADOL [Concomitant]
     Indication: ARTHRITIS
     Route: 048
  14. ALPRAZOLAM [Concomitant]
     Indication: ANXIETY
     Dosage: 0.25 mg
     Route: 048
  15. ARTHRITIS  TYLENOL [Concomitant]
     Indication: ARTHRALGIA
     Route: 048

REACTIONS (1)
  - Condition aggravated [Unknown]
